FAERS Safety Report 5849734-2 (Version None)
Quarter: 2008Q3

REPORT INFORMATION
  Report Type: 
  Country: None (occurrence: None)
  Receive Date: 20080818
  Receipt Date: 20080818
  Transmission Date: 20090109
  Serious: Yes (Hospitalization)
  Sender: FDA-Public Use
  Company Number: None

PATIENT
  Age: 61 Year
  Sex: Male
  Weight: 110.6 kg

DRUGS (2)
  1. PIPERACILLIN AND TAZOBACTAM [Suspect]
     Indication: UROSEPSIS
     Dosage: 3.375 GM QID IV
     Route: 042
     Dates: start: 20080703, end: 20080706
  2. NAFCILLIN SODIUM [Suspect]
     Indication: UROSEPSIS
     Dosage: 500 MG QID IV
     Route: 042
     Dates: start: 20080706, end: 20080710

REACTIONS (2)
  - NEPHRITIS [None]
  - RESPIRATORY RATE INCREASED [None]
